FAERS Safety Report 5917351-1 (Version None)
Quarter: 2008Q4

REPORT INFORMATION
  Report Type: 
  Country: None (occurrence: None)
  Receive Date: 20081014
  Receipt Date: 20080930
  Transmission Date: 20090506
  Serious: Yes (Other)
  Sender: FDA-Public Use
  Company Number: US-AMGEN-US310599

PATIENT
  Sex: Male

DRUGS (4)
  1. ARANESP [Suspect]
     Indication: RENAL FAILURE CHRONIC
     Route: 058
     Dates: start: 20040624
  2. PROCRIT [Suspect]
     Indication: RENAL FAILURE CHRONIC
     Route: 058
     Dates: end: 20080701
  3. VITAMIN D [Concomitant]
     Route: 065
  4. TYLENOL (CAPLET) [Concomitant]
     Route: 065

REACTIONS (3)
  - ADVERSE DRUG REACTION [None]
  - OSTEOMYELITIS [None]
  - THERAPEUTIC RESPONSE DECREASED [None]
